FAERS Safety Report 8198942-7 (Version None)
Quarter: 2012Q1

REPORT INFORMATION
  Report Type: 
  Country: None (occurrence: None)
  Receive Date: 20120309
  Receipt Date: 20120224
  Transmission Date: 20120608
  Serious: No
  Sender: FDA-Public Use
  Company Number: US-AMGEN-USASP2012012215

PATIENT
  Age: 76 Year
  Sex: Female

DRUGS (6)
  1. MIRAPEX [Concomitant]
     Dosage: 1 MG, UNK
  2. LEVOTHYROXINE SODIUM [Concomitant]
  3. MULTIVITAMIN                       /00097801/ [Concomitant]
     Dosage: UNK
  4. CALCIUM [Concomitant]
  5. PROLIA [Suspect]
     Indication: OSTEOPOROSIS POSTMENOPAUSAL
     Dosage: 60 MG, Q6MO
     Dates: start: 20120223
  6. VITAMIN D [Concomitant]
     Dosage: UNK IU, UNK

REACTIONS (3)
  - RASH ERYTHEMATOUS [None]
  - RASH MACULAR [None]
  - RASH PRURITIC [None]
